FAERS Safety Report 11828845 (Version 1)
Quarter: 2015Q4

REPORT INFORMATION
  Report Type: Spontaneous
  Country: FR (occurrence: FR)
  Receive Date: 20151211
  Receipt Date: 20151211
  Transmission Date: 20160305
  Serious: Yes (Hospitalization)
  Sender: FDA-Public Use
  Company Number: FR-SA-2015SA203212

PATIENT
  Age: 85 Year
  Sex: Female

DRUGS (11)
  1. ALDACTONE [Suspect]
     Active Substance: SPIRONOLACTONE
     Route: 048
  2. LASILIX [Suspect]
     Active Substance: FUROSEMIDE
     Dosage: START DATE: MANY YEARS
     Route: 048
  3. BRILIQUE [Suspect]
     Active Substance: TICAGRELOR
     Route: 048
     Dates: start: 201504
  4. DOLIPRANE [Suspect]
     Active Substance: ACETAMINOPHEN
     Dosage: START DATE: SINCE MANY YEARS
     Route: 048
  5. AMLODIPINE [Suspect]
     Active Substance: AMLODIPINE BESYLATE
     Route: 048
     Dates: start: 20151015
  6. MOVICOL [Suspect]
     Active Substance: POLYETHYLENE GLYCOL 3350\POTASSIUM CHLORIDE\SODIUM BICARBONATE\SODIUM CHLORIDE
     Dosage: START DATE: MANY YEARS
     Route: 048
  7. IMOVANE [Suspect]
     Active Substance: ZOPICLONE
     Dosage: START DATE: MANY YEARS
     Route: 048
  8. RAMIPRIL. [Suspect]
     Active Substance: RAMIPRIL
     Dosage: START DATE: MANY YEARS
     Route: 048
     Dates: end: 20151015
  9. LANSOPRAZOLE. [Suspect]
     Active Substance: LANSOPRAZOLE
     Dosage: START DATE: MANY YEARS
     Route: 048
  10. AMLODIPINE [Suspect]
     Active Substance: AMLODIPINE BESYLATE
     Dosage: START DATE: MANY YEARS
     Route: 048
     Dates: end: 20151011
  11. KARDEGIC [Suspect]
     Active Substance: ASPIRIN LYSINE
     Dosage: START DATE: MANY YEARS
     Route: 048

REACTIONS (3)
  - Oedema peripheral [Not Recovered/Not Resolved]
  - Erythema [Not Recovered/Not Resolved]
  - Rash [Not Recovered/Not Resolved]

NARRATIVE: CASE EVENT DATE: 201504
